FAERS Safety Report 7372316-0 (Version None)
Quarter: 2011Q1

REPORT INFORMATION
  Report Type: 
  Country: None (occurrence: None)
  Receive Date: 20110324
  Receipt Date: 20110316
  Transmission Date: 20110831
  Serious: Yes (Other)
  Sender: FDA-Public Use
  Company Number: B0700456A

PATIENT
  Sex: Female

DRUGS (4)
  1. BIOFERMIN R [Concomitant]
     Dosage: 1.5G PER DAY
     Route: 048
  2. MUCODYNE [Concomitant]
     Dosage: 9.6ML PER DAY
     Route: 048
  3. AMOXICILLIN AND CLAVULANATE POTASSIUM [Suspect]
     Indication: OTITIS MEDIA
     Dosage: 4.04G PER DAY
     Route: 048
     Dates: start: 20110202, end: 20110205
  4. MEIACT [Concomitant]

REACTIONS (1)
  - JAUNDICE [None]
